FAERS Safety Report 12248271 (Version 2)
Quarter: 2016Q2

REPORT INFORMATION
  Report Type: Spontaneous
  Country: US (occurrence: US)
  Receive Date: 20160408
  Receipt Date: 20160414
  Transmission Date: 20160815
  Serious: No
  Sender: FDA-Public Use
  Company Number: US-TEVA-644899ACC

PATIENT
  Age: 45 Year
  Sex: Female
  Weight: 63.56 kg

DRUGS (3)
  1. PARAGARD T 380A [Suspect]
     Active Substance: COPPER
     Indication: CONTRACEPTION
     Dates: start: 20160308
  2. TOPIRAMATE. [Concomitant]
     Active Substance: TOPIRAMATE
     Indication: AFFECTIVE DISORDER
  3. GABAPENTIN. [Concomitant]
     Active Substance: GABAPENTIN
     Indication: BIPOLAR DISORDER

REACTIONS (5)
  - Vaginal haemorrhage [Not Recovered/Not Resolved]
  - Vaginal odour [Recovered/Resolved]
  - Thrombosis [Unknown]
  - Diarrhoea [Recovered/Resolved]
  - Abdominal pain [Recovered/Resolved]

NARRATIVE: CASE EVENT DATE: 20160310
